FAERS Safety Report 16500590 (Version 1)
Quarter: 2019Q2

REPORT INFORMATION
  Report Type: Spontaneous
  Country: US (occurrence: US)
  Receive Date: 20190520
  Receipt Date: 20190520
  Transmission Date: 20190711
  Serious: Yes (Hospitalization)
  Sender: FDA-Public Use
  Company Number: None

PATIENT
  Age: 8 Year
  Sex: Female

DRUGS (2)
  1. ATROPINE. [Concomitant]
     Active Substance: ATROPINE
  2. OMNITROPE [Suspect]
     Active Substance: SOMATROPIN
     Indication: NEOPLASM
     Dosage: ?          OTHER FREQUENCY:ONCE Q NIGHT HS;?
     Route: 058
     Dates: start: 20190201

REACTIONS (1)
  - Appendicectomy [None]

NARRATIVE: CASE EVENT DATE: 20190513
